FAERS Safety Report 24687416 (Version 1)
Quarter: 2024Q4

REPORT INFORMATION
  Report Type: Spontaneous
  Country: DE (occurrence: DE)
  Receive Date: 20241202
  Receipt Date: 20241202
  Transmission Date: 20250115
  Serious: Yes (Other)
  Sender: MEITHEAL PHARMACEUTICALS
  Company Number: DE-MEITHEAL-2024MPLIT00393

PATIENT
  Age: 42 Year
  Sex: Female

DRUGS (3)
  1. CARBOPLATIN [Suspect]
     Active Substance: CARBOPLATIN
     Indication: HER2 positive breast cancer
     Dosage: 4 CYCLES
     Route: 065
  2. DOCETAXEL [Suspect]
     Active Substance: DOCETAXEL
     Indication: HER2 positive breast cancer
     Dosage: 4 CYCLES
     Route: 065
  3. PERTUZUMAB\TRASTUZUMAB [Suspect]
     Active Substance: PERTUZUMAB\TRASTUZUMAB
     Indication: HER2 positive breast cancer
     Dosage: 4 CYCLES
     Route: 065

REACTIONS (2)
  - Papilloedema [Recovering/Resolving]
  - Blindness [Recovered/Resolved]
